FAERS Safety Report 5503949-1 (Version None)
Quarter: 2007Q4

REPORT INFORMATION
  Report Type: 
  Country: None (occurrence: None)
  Receive Date: 20071101
  Receipt Date: 20071031
  Transmission Date: 20080405
  Serious: Yes (Other)
  Sender: FDA-Public Use
  Company Number: US-BRISTOL-MYERS SQUIBB COMPANY-13964945

PATIENT
  Age: 77 Year
  Sex: Male

DRUGS (1)
  1. GLYBURIDE AND METFORMIN HCL [Suspect]

REACTIONS (1)
  - BLOOD GLUCOSE INCREASED [None]
